FAERS Safety Report 18834877 (Version 1)
Quarter: 2021Q1

REPORT INFORMATION
  Report Type: Spontaneous
  Country: US (occurrence: US)
  Receive Date: 20210203
  Receipt Date: 20210203
  Transmission Date: 20210419
  Serious: No
  Sender: FDA-Public Use
  Company Number: US-ALLERGAN-2031501US

PATIENT
  Sex: Female
  Weight: 70.3 kg

DRUGS (6)
  1. IBUPROFEN. [Concomitant]
     Active Substance: IBUPROFEN
     Indication: ANTIINFLAMMATORY THERAPY
     Dosage: 600 MG
     Route: 048
  2. DIFLUCAN [Concomitant]
     Active Substance: FLUCONAZOLE
     Dosage: 150 MG
     Route: 048
  3. LATISSE [Concomitant]
     Active Substance: BIMATOPROST
     Dosage: UNK, QHS
  4. BOTOX COSMETIC [Suspect]
     Active Substance: ONABOTULINUMTOXINA
     Indication: SKIN WRINKLING
     Dosage: 31 UNITS, SINGLE
     Dates: start: 20200619, end: 20200619
  5. PRENATAL [Concomitant]
     Active Substance: VITAMINS
     Dosage: 1 MG, QD
     Route: 048
  6. RETIN?A [Concomitant]
     Active Substance: TRETINOIN
     Dosage: UNK, QHS
     Route: 061

REACTIONS (4)
  - Injection site haemorrhage [Unknown]
  - Injection site discomfort [Unknown]
  - Injection site bruising [Unknown]
  - Drug ineffective [Unknown]
